FAERS Safety Report 8615115-1 (Version None)
Quarter: 2012Q3

REPORT INFORMATION
  Report Type: 
  Country: None (occurrence: None)
  Receive Date: 20120823
  Receipt Date: 20120814
  Transmission Date: 20120928
  Serious: Yes (Hospitalization, Other)
  Sender: FDA-Public Use
  Company Number: DE-ABBOTT-12P-062-0917762-00

PATIENT
  Sex: Male
  Weight: 75 kg

DRUGS (4)
  1. TILIDIN [Suspect]
     Indication: ANKYLOSING SPONDYLITIS
     Route: 048
  2. HUMIRA [Suspect]
     Dates: start: 20120401, end: 20120701
  3. HUMIRA [Suspect]
     Indication: ANKYLOSING SPONDYLITIS
     Route: 058
     Dates: start: 20090217
  4. MELOXICAM [Suspect]
     Indication: ANKYLOSING SPONDYLITIS
     Route: 048

REACTIONS (2)
  - INCISIONAL HERNIA [None]
  - INGUINAL HERNIA [None]
